FAERS Safety Report 6457167-3 (Version None)
Quarter: 2009Q4

REPORT INFORMATION
  Report Type: 
  Country: None (occurrence: None)
  Receive Date: 20091125
  Receipt Date: 20091118
  Transmission Date: 20100525
  Serious: Yes (Other)
  Sender: FDA-Public Use
  Company Number: JP-BAXTER-2009BH017891

PATIENT
  Age: 27 Year
  Sex: Male

DRUGS (7)
  1. ENDOXAN BAXTER [Suspect]
     Indication: BONE MARROW CONDITIONING REGIMEN
     Route: 065
  2. ETOPOSIDE [Suspect]
     Indication: BONE MARROW CONDITIONING REGIMEN
     Route: 065
  3. BAKTAR [Concomitant]
     Indication: CYTOMEGALOVIRUS INFECTION
     Route: 065
  4. CYCLOSPORINE [Concomitant]
     Indication: PROPHYLAXIS
     Route: 065
  5. METHOTREXATE [Concomitant]
     Indication: PROPHYLAXIS
     Route: 065
  6. METHYLPREDNISOLONE [Concomitant]
     Indication: CYTOMEGALOVIRUS INFECTION
     Route: 065
  7. GANCICLOVIR [Concomitant]
     Indication: CYTOMEGALOVIRUS INFECTION
     Route: 065

REACTIONS (1)
  - OESOPHAGEAL CARCINOMA [None]
